FAERS Safety Report 5006613-0 (Version None)
Quarter: 2006Q2

REPORT INFORMATION
  Report Type: 
  Country: None (occurrence: None)
  Receive Date: 20060519
  Receipt Date: 20060509
  Transmission Date: 20061013
  Serious: Yes (Other)
  Sender: FDA-Public Use
  Company Number: FR-GLAXOSMITHKLINE-B0423690A

PATIENT
  Age: 66 Year
  Sex: Male

DRUGS (2)
  1. SERETIDE DISKUS [Suspect]
     Indication: ASTHMA
     Dosage: 1PUFF PER DAY
     Route: 055
     Dates: end: 20060401
  2. SINGULAIR [Concomitant]
     Indication: ASTHMA
     Dosage: 1TAB AT NIGHT
     Route: 048
     Dates: start: 20050101

REACTIONS (2)
  - OSTEOPOROSIS [None]
  - SPINAL COMPRESSION FRACTURE [None]
